FAERS Safety Report 23766887 (Version 1)
Quarter: 2024Q2

REPORT INFORMATION
  Report Type: Spontaneous
  Country: US (occurrence: US)
  Receive Date: 20240422
  Receipt Date: 20240422
  Transmission Date: 20240715
  Serious: Yes (Hospitalization, Other)
  Sender: FDA-Public Use
  Company Number: US-MLMSERVICE-20190917-1958185-1

PATIENT
  Age: 76 Year
  Sex: Male

DRUGS (2)
  1. MYCOPHENOLIC ACID [Suspect]
     Active Substance: MYCOPHENOLIC ACID
     Indication: Encephalitis autoimmune
     Dosage: UNK
     Route: 065
  2. IMMUNOGLOBULINS [Concomitant]
     Indication: Encephalitis autoimmune
     Dosage: HIGH DOSE
     Route: 042

REACTIONS (3)
  - Hyponatraemia [Unknown]
  - Condition aggravated [Unknown]
  - Encephalitis autoimmune [Unknown]
